FAERS Safety Report 6690243-9 (Version None)
Quarter: 2010Q2

REPORT INFORMATION
  Report Type: 
  Country: None (occurrence: None)
  Receive Date: 20100412
  Receipt Date: 20091207
  Transmission Date: 20101027
  Serious: No
  Sender: FDA-Public Use
  Company Number: 1000010591

PATIENT
  Age: 52 Year
  Sex: Male

DRUGS (3)
  1. BYSTOLIC [Suspect]
     Indication: ANXIETY
     Dosage: 5 MG (5 MG, 1 IN 1 D), ORAL
     Route: 048
     Dates: start: 20091204
  2. ATIVAN [Concomitant]
  3. PRISTIQ [Concomitant]

REACTIONS (2)
  - ANXIETY [None]
  - ENERGY INCREASED [None]
